FAERS Safety Report 16297543 (Version 1)
Quarter: 2019Q2

REPORT INFORMATION
  Report Type: Spontaneous
  Country: US (occurrence: US)
  Receive Date: 20190509
  Receipt Date: 20190509
  Transmission Date: 20190711
  Serious: Yes (Hospitalization)
  Sender: FDA-Public Use
  Company Number: None

PATIENT
  Sex: Female

DRUGS (4)
  1. XELJANZ [Suspect]
     Active Substance: TOFACITINIB CITRATE
     Indication: RHEUMATOID ARTHRITIS
     Route: 048
     Dates: start: 20190128
  2. CRANBERRY, KLONOPIN [Concomitant]
  3. MULTI CAP FOR HER, PREDNISONE [Concomitant]
  4. TURMERIC, VITAMIN D3 [Concomitant]

REACTIONS (2)
  - Rheumatoid arthritis [None]
  - Nephrolithiasis [None]
